FAERS Safety Report 5661166-9 (Version None)
Quarter: 2008Q1

REPORT INFORMATION
  Report Type: 
  Country: None (occurrence: None)
  Receive Date: 20080303
  Receipt Date: 20080226
  Transmission Date: 20080703
  Serious: Yes (Hospitalization, Other)
  Sender: FDA-Public Use
  Company Number: CHPA2008US03599

PATIENT
  Age: 67 Year
  Sex: Female

DRUGS (1)
  1. TRANSDERM SCOP [Suspect]
     Indication: VERTIGO
     Dosage: 1.5 MG, Q72H, TRANSDERMAL
     Route: 062
     Dates: start: 20060901

REACTIONS (2)
  - DRUG DEPENDENCE [None]
  - WITHDRAWAL SYNDROME [None]
